FAERS Safety Report 9734158 (Version 2)
Quarter: 2014Q2

REPORT INFORMATION
  Report Type: Spontaneous
  Country: US (occurrence: US)
  Receive Date: 20131205
  Receipt Date: 20140513
  Transmission Date: 20141212
  Serious: Yes (Hospitalization, Disabling, Other)
  Sender: FDA-Public Use
  Company Number: US-009507513-1312USA001887

PATIENT
  Sex: Female

DRUGS (15)
  1. FOSAMAX [Suspect]
     Indication: OSTEOPOROSIS PROPHYLAXIS
     Dosage: 70 MG, QW
     Route: 048
     Dates: start: 20011130, end: 200802
  2. FOSAMAX [Suspect]
     Indication: OSTEOPOROSIS
  3. FOSAMAX [Suspect]
     Indication: OSTEOPENIA
  4. ALENDRONATE SODIUM [Suspect]
     Indication: OSTEOPOROSIS PROPHYLAXIS
     Dosage: UNK
     Route: 048
     Dates: start: 200802, end: 2009
  5. ALENDRONATE SODIUM [Suspect]
     Indication: OSTEOPOROSIS
  6. CALCIUM (UNSPECIFIED) [Concomitant]
     Indication: OSTEOPENIA
     Dosage: 1200 MG, UNK
     Dates: start: 20011130
  7. CALCIUM (UNSPECIFIED) [Concomitant]
     Indication: OSTEOPOROSIS
  8. VITAMIN D (UNSPECIFIED) [Concomitant]
     Indication: OSTEOPENIA
     Dosage: 400-800 IU, QD
  9. VITAMIN D (UNSPECIFIED) [Concomitant]
     Indication: OSTEOPOROSIS
  10. CALCIUM (UNSPECIFIED) (+) VITAMIN D (UNSPECIFIED) [Concomitant]
     Indication: OSTEOPENIA
  11. CALCIUM (UNSPECIFIED) (+) VITAMIN D (UNSPECIFIED) [Concomitant]
     Indication: OSTEOPOROSIS
  12. BONIVA [Concomitant]
     Indication: OSTEOPENIA
  13. BONIVA [Concomitant]
     Indication: OSTEOPOROSIS
  14. BENADRYL [Concomitant]
     Indication: HYPERSENSITIVITY
  15. PATANOL [Concomitant]
     Indication: HYPERSENSITIVITY

REACTIONS (30)
  - Femur fracture [Not Recovered/Not Resolved]
  - Intramedullary rod insertion [Unknown]
  - Cellulitis [Unknown]
  - Deep vein thrombosis [Unknown]
  - Chills [Unknown]
  - Hip fracture [Not Recovered/Not Resolved]
  - Low turnover osteopathy [Not Recovered/Not Resolved]
  - Peripheral swelling [Unknown]
  - Night sweats [Unknown]
  - Osteoporosis [Not Recovered/Not Resolved]
  - Erythema [Unknown]
  - Pain in extremity [Unknown]
  - Radius fracture [Recovering/Resolving]
  - Sinusitis [Unknown]
  - Porokeratosis [Unknown]
  - Bladder diverticulum [Unknown]
  - Bladder disorder [Unknown]
  - Blood glucose increased [Unknown]
  - Cough [Unknown]
  - Unevaluable event [Unknown]
  - Vitamin D deficiency [Unknown]
  - Chest pain [Unknown]
  - Depressed mood [Unknown]
  - Cataract operation [Unknown]
  - Hypercholesterolaemia [Unknown]
  - Anaemia [Not Recovered/Not Resolved]
  - Discomfort [Unknown]
  - Eye pruritus [Unknown]
  - Lacrimation increased [Unknown]
  - Drug ineffective [Unknown]
